FAERS Safety Report 8242957-7 (Version None)
Quarter: 2012Q1

REPORT INFORMATION
  Report Type: 
  Country: None (occurrence: None)
  Receive Date: 20120329
  Receipt Date: 20120326
  Transmission Date: 20120608
  Serious: Yes (Hospitalization)
  Sender: FDA-Public Use
  Company Number: GB-EISAI INC-E2090-02049-SPO-GB

PATIENT
  Age: 61 Year
  Sex: Male
  Weight: 96 kg

DRUGS (9)
  1. ALBUTEROL [Concomitant]
     Indication: CHRONIC OBSTRUCTIVE PULMONARY DISEASE
     Route: 055
     Dates: start: 20091015
  2. TIOTROPIUM BROMIDE MONOHYDRATE [Concomitant]
     Indication: CHRONIC OBSTRUCTIVE PULMONARY DISEASE
     Route: 055
     Dates: start: 20120208
  3. OMEPRAZOLE [Concomitant]
     Indication: DYSPEPSIA
     Route: 048
     Dates: start: 20031013
  4. PREDNISOLONE [Concomitant]
     Dates: start: 20120217
  5. SIMVASTATIN [Concomitant]
     Indication: CARDIOVASCULAR EVENT PROPHYLAXIS
     Route: 048
     Dates: start: 20081110
  6. PREGABALIN [Concomitant]
  7. ZONISAMIDE [Suspect]
     Dosage: UNKNOWN
     Route: 048
     Dates: start: 20120111, end: 20120221
  8. LISKONUM [Concomitant]
     Dosage: 450 MG UNKNOWN
     Route: 048
     Dates: start: 20010503
  9. AMOXICILLIN [Concomitant]
     Route: 048
     Dates: start: 20120217

REACTIONS (5)
  - WHITE BLOOD CELL COUNT DECREASED [None]
  - HYPERHIDROSIS [None]
  - PYREXIA [None]
  - CHILLS [None]
  - INFLUENZA LIKE ILLNESS [None]
